FAERS Safety Report 4892026-9 (Version None)
Quarter: 2006Q1

REPORT INFORMATION
  Report Type: 
  Country: None (occurrence: None)
  Receive Date: 20060124
  Receipt Date: 20060113
  Transmission Date: 20060701
  Serious: Yes (Hospitalization)
  Sender: FDA-Public Use
  Company Number: 2005BI020736

PATIENT
  Age: 61 Year
  Sex: Female
  Weight: 58.9676 kg

DRUGS (7)
  1. AVONEX [Suspect]
     Indication: MULTIPLE SCLEROSIS
     Dosage: SEE IMAGE
     Route: 030
     Dates: start: 19980101, end: 20030101
  2. AVONEX [Suspect]
     Indication: MULTIPLE SCLEROSIS
     Dosage: SEE IMAGE
     Route: 030
     Dates: start: 20040424, end: 20051230
  3. AVONEX [Suspect]
     Indication: MULTIPLE SCLEROSIS
     Dosage: 30 UG;QW;IM
     Route: 030
     Dates: start: 20030101
  4. NEURONTIN [Concomitant]
  5. PAMELOR [Concomitant]
  6. IBUPROFEN [Concomitant]
  7. VICODIN [Concomitant]

REACTIONS (13)
  - ARTHROPATHY [None]
  - CHOLELITHIASIS [None]
  - CONTUSION [None]
  - DIARRHOEA [None]
  - FALL [None]
  - HEPATIC CYST [None]
  - HEPATOCELLULAR DAMAGE [None]
  - MUSCLE SPASMS [None]
  - NEPHROLITHIASIS [None]
  - PRURITUS [None]
  - RASH GENERALISED [None]
  - SCRATCH [None]
  - WEIGHT DECREASED [None]
